FAERS Safety Report 9718208 (Version 2)
Quarter: 2014Q1

REPORT INFORMATION
  Report Type: Spontaneous
  Country: US (occurrence: US)
  Receive Date: 20131127
  Receipt Date: 20140115
  Transmission Date: 20141002
  Serious: Yes (Other)
  Sender: FDA-Public Use
  Company Number: US-ELI_LILLY_AND_COMPANY-US201311007540

PATIENT
  Age: 59 Year
  Sex: Female

DRUGS (5)
  1. TADALAFIL [Suspect]
     Indication: PULMONARY VASCULAR DISORDER
     Dosage: 20 MG, QD
     Route: 065
  2. TADALAFIL [Suspect]
     Dosage: 40 MG, QD
     Route: 048
  3. THALIDOMIDE [Suspect]
     Indication: PULMONARY VASCULAR DISORDER
     Route: 065
  4. RALOXIFENE [Concomitant]
     Indication: PULMONARY VASCULAR DISORDER
     Route: 065
  5. TREPROSTINIL [Concomitant]
     Indication: PULMONARY VASCULAR DISORDER
     Route: 055

REACTIONS (3)
  - Oesophageal motility disorder [Recovered/Resolved]
  - Paraesthesia [Unknown]
  - Dyspnoea [Unknown]
